FAERS Safety Report 23333730 (Version 1)
Quarter: 2023Q4

REPORT INFORMATION
  Report Type: Spontaneous
  Country: US (occurrence: US)
  Receive Date: 20231223
  Receipt Date: 20231223
  Transmission Date: 20240110
  Serious: No
  Sender: FDA-Public Use
  Company Number: US-ABBVIE-5554184

PATIENT
  Sex: Female

DRUGS (1)
  1. GELNIQUE [Suspect]
     Active Substance: OXYBUTYNIN
     Indication: Product used for unknown indication
     Route: 065
     Dates: start: 2016

REACTIONS (3)
  - Product packaging quantity issue [Not Recovered/Not Resolved]
  - Adverse event [Unknown]
  - General symptom [Unknown]
